FAERS Safety Report 19626328 (Version 1)
Quarter: 2021Q3

REPORT INFORMATION
  Report Type: Spontaneous
  Country: US (occurrence: US)
  Receive Date: 20210728
  Receipt Date: 20210728
  Transmission Date: 20211014
  Serious: Yes (Other)
  Sender: FDA-Public Use
  Company Number: None

PATIENT
  Sex: Female

DRUGS (2)
  1. FUROSEMIDE  20 MG [Suspect]
     Active Substance: FUROSEMIDE
  2. BUMETANIDE. [Suspect]
     Active Substance: BUMETANIDE

REACTIONS (1)
  - Hypersensitivity [None]
